FAERS Safety Report 12166343 (Version 3)
Quarter: 2016Q2

REPORT INFORMATION
  Report Type: Spontaneous
  Country: DE (occurrence: DE)
  Receive Date: 20160309
  Receipt Date: 20160426
  Transmission Date: 20160815
  Serious: Yes (Death, Hospitalization, Other)
  Sender: FDA-Public Use
  Company Number: DE-GILEAD-2016-0202125

PATIENT
  Age: 72 Year
  Sex: Male
  Weight: 75 kg

DRUGS (1)
  1. ZYDELIG [Suspect]
     Active Substance: IDELALISIB
     Indication: B-CELL LYMPHOMA
     Dosage: 150 MG, BID
     Route: 048
     Dates: start: 20151012, end: 20160118

REACTIONS (4)
  - Urogenital disorder [Unknown]
  - B-cell lymphoma [Unknown]
  - Pneumonia [Fatal]
  - Sepsis [Fatal]

NARRATIVE: CASE EVENT DATE: 20160206
